FAERS Safety Report 21332438 (Version 2)
Quarter: 2022Q3

REPORT INFORMATION
  Report Type: Report from Study
  Country: CN (occurrence: CN)
  Receive Date: 20220914
  Receipt Date: 20220920
  Transmission Date: 20221026
  Serious: Yes (Other)
  Sender: FDA-Public Use
  Company Number: CN-Accord-277518

PATIENT
  Age: 70 Year
  Sex: Male

DRUGS (2)
  1. GEMCITABINE [Suspect]
     Active Substance: GEMCITABINE
     Indication: Gallbladder cancer metastatic
     Dosage: 1000 MG/M2. RECEIVED 3 CYCLE
     Route: 042
     Dates: start: 2021
  2. PACLITAXEL [Suspect]
     Active Substance: PACLITAXEL
     Indication: Gallbladder cancer metastatic
     Dosage: 125 MG/M2, ON DAY-1 AND DAY-8, RECEIVED 3 CYCLE
     Dates: start: 2021

REACTIONS (2)
  - Leukopenia [Unknown]
  - Fatigue [Unknown]
